FAERS Safety Report 18992811 (Version 1)
Quarter: 2021Q1

REPORT INFORMATION
  Report Type: Spontaneous
  Country: DE (occurrence: DE)
  Receive Date: 20210310
  Receipt Date: 20210310
  Transmission Date: 20210420
  Serious: Yes (Hospitalization)
  Sender: FDA-Public Use
  Company Number: DE-PFIZER INC-2021220523

PATIENT
  Age: 68 Year
  Sex: Male
  Weight: 90 kg

DRUGS (12)
  1. COLCHICIN [Concomitant]
     Active Substance: COLCHICINE
     Dosage: 0.5 MG, 2X/DAY (1?0?1?0, TABLETS)
     Route: 048
  2. PANTOPRAZOLE [Concomitant]
     Active Substance: PANTOPRAZOLE
     Dosage: 40 MG, 1X/DAY, 1?0?0?0, TABLETS
     Route: 048
  3. ATORVASTATIN [Concomitant]
     Active Substance: ATORVASTATIN
     Dosage: 40 MG, 1X/DAY,  0?0?1?0, TABLETS
     Route: 048
  4. IBUPROFEN. [Concomitant]
     Active Substance: IBUPROFEN
     Dosage: 400 MG, 3X/DAY, 1?1?1?0, TABELTS
     Route: 048
  5. FERRUM [IRON] [Concomitant]
     Active Substance: IRON
     Dosage: 100 MG, 1X/DAY, 1?0?0?0, CAPSULES
     Route: 048
  6. EDOXABAN [Concomitant]
     Active Substance: EDOXABAN TOSYLATE
     Dosage: 30 MG, 1X/DAY, 1?0?0?0?0, TABLETS
     Route: 048
  7. RAMIPRIL. [Concomitant]
     Active Substance: RAMIPRIL
     Dosage: 5 MG, 2X/DAY, 1?0?1?0, TABLETS
     Route: 048
  8. AMLODIPINE BESILATE [Suspect]
     Active Substance: AMLODIPINE BESYLATE
     Dosage: 5 MG, DAILY ( 0.5?0?0.5?0, TABLETS)
     Route: 048
  9. METOPROLOL. [Suspect]
     Active Substance: METOPROLOL
     Dosage: 95 MG, 1X/DAY, (1?0?0?0)
     Route: 048
  10. CLOPIDOGREL [Concomitant]
     Active Substance: CLOPIDOGREL BISULFATE
     Dosage: 75 MG, 1X/DAY,  1?0?0?0, TABLETS
     Route: 048
  11. TORASEMID [Suspect]
     Active Substance: TORSEMIDE
     Dosage: 10 MG, 4?3?0?0, TABLETS
     Route: 048
  12. ALLOPURINOL. [Concomitant]
     Active Substance: ALLOPURINOL
     Dosage: 300 MG, 1X/DAY, 1?0?0?0, TABLETS
     Route: 048

REACTIONS (3)
  - Dyspnoea [Recovering/Resolving]
  - Weight increased [Recovering/Resolving]
  - Oedema peripheral [Recovering/Resolving]
